FAERS Safety Report 11753307 (Version 3)
Quarter: 2015Q4

REPORT INFORMATION
  Report Type: Spontaneous
  Country: JP (occurrence: JP)
  Receive Date: 20151119
  Receipt Date: 20151208
  Transmission Date: 20160304
  Serious: Yes (Hospitalization)
  Sender: FDA-Public Use
  Company Number: PHJP2015JP009471

PATIENT
  Age: 23 Year
  Sex: Female
  Weight: 58 kg

DRUGS (3)
  1. KAYWAN [Concomitant]
     Indication: HAEMORRHAGE PROPHYLAXIS
     Dosage: 10 MG, TID
     Route: 048
     Dates: start: 20150715, end: 20150807
  2. FOLIAMIN [Concomitant]
     Active Substance: FOLIC ACID
     Indication: PREGNANCY
     Dosage: 5 MG, QD
     Route: 048
     Dates: start: 20150119, end: 20150807
  3. TEGRETOL [Suspect]
     Active Substance: CARBAMAZEPINE
     Indication: EPILEPSY
     Dosage: 400 MG, BID
     Route: 048

REACTIONS (5)
  - Normal newborn [Unknown]
  - Threatened labour [Recovered/Resolved]
  - Uterine haemorrhage [Recovering/Resolving]
  - Heart rate increased [Recovering/Resolving]
  - Maternal exposure during pregnancy [Unknown]

NARRATIVE: CASE EVENT DATE: 20150413
